FAERS Safety Report 25758207 (Version 1)
Quarter: 2025Q3

REPORT INFORMATION
  Report Type: Spontaneous
  Country: VE (occurrence: VE)
  Receive Date: 20250904
  Receipt Date: 20250904
  Transmission Date: 20251020
  Serious: Yes (Other)
  Sender: NOVARTIS
  Company Number: VE-002147023-NVSC2025VE076025

PATIENT
  Sex: Male

DRUGS (1)
  1. GLIVEC [Suspect]
     Active Substance: IMATINIB MESYLATE
     Indication: Chronic myeloid leukaemia
     Route: 065

REACTIONS (6)
  - Nephrolithiasis [Unknown]
  - Blood urine present [Unknown]
  - Blood triglycerides increased [Unknown]
  - Hyperglycaemia [Unknown]
  - Platelet count decreased [Unknown]
  - Cholelithiasis [Unknown]
